FAERS Safety Report 7475149-X (Version None)
Quarter: 2011Q2

REPORT INFORMATION
  Report Type: 
  Country: None (occurrence: None)
  Receive Date: 20110512
  Receipt Date: 20110511
  Transmission Date: 20111010
  Serious: Yes (Hospitalization)
  Sender: FDA-Public Use
  Company Number: IT-SANOFI-AVENTIS-2011SA027000

PATIENT
  Age: 79 Year
  Sex: Female

DRUGS (7)
  1. LORAZEPAM [Suspect]
     Route: 048
     Dates: start: 20010428, end: 20110428
  2. ASPIRIN [Concomitant]
     Route: 065
  3. HUMALOG [Suspect]
     Route: 058
     Dates: start: 20060429, end: 20110429
  4. LANTUS [Suspect]
     Dosage: DOSE:10 UNIT(S)
     Route: 058
     Dates: start: 20060429, end: 20110429
  5. TOPAMAX [Concomitant]
     Route: 048
  6. LORAZEPAM [Suspect]
     Route: 048
     Dates: start: 20110429, end: 20110429
  7. CACIT VITAMINE D3 [Concomitant]
     Route: 065

REACTIONS (4)
  - SOPOR [None]
  - DRUG ADMINISTRATION ERROR [None]
  - HYPOGLYCAEMIA [None]
  - DEPRESSED LEVEL OF CONSCIOUSNESS [None]
